FAERS Safety Report 4461696-1 (Version None)
Quarter: 2004Q3

REPORT INFORMATION
  Report Type: 
  Country: None (occurrence: None)
  Receive Date: 20040923
  Receipt Date: 20040909
  Transmission Date: 20050211
  Serious: Yes (Hospitalization, Other)
  Sender: FDA-Public Use
  Company Number: DE-SHR-04-021513

PATIENT
  Age: 27 Year
  Sex: Female
  Weight: 65 kg

DRUGS (1)
  1. YASMIN [Suspect]
     Indication: ORAL CONTRACEPTION
     Dosage: 1 TAB(S), 21D/28D, ORAL
     Route: 048
     Dates: start: 20001001, end: 20030601

REACTIONS (7)
  - COAGULATION FACTOR VII LEVEL DECREASED [None]
  - COAGULATION FACTOR VIII LEVEL INCREASED [None]
  - DEEP VEIN THROMBOSIS [None]
  - HEPATIC HAEMORRHAGE [None]
  - PROTEIN C DECREASED [None]
  - PROTEIN S DECREASED [None]
  - PULMONARY EMBOLISM [None]
